FAERS Safety Report 25076198 (Version 1)
Quarter: 2025Q1

REPORT INFORMATION
  Report Type: Spontaneous
  Country: JP (occurrence: JP)
  Receive Date: 20250313
  Receipt Date: 20250313
  Transmission Date: 20250409
  Serious: Yes (Other)
  Sender: DAIICHI
  Company Number: JP-DSJP-DS-2025-127552-JP

PATIENT
  Age: 4 Decade
  Sex: Female
  Weight: 90 kg

DRUGS (2)
  1. EDOXABAN TOSYLATE [Suspect]
     Active Substance: EDOXABAN TOSYLATE
     Indication: Thrombophlebitis
     Route: 065
  2. EDOXABAN TOSYLATE [Suspect]
     Active Substance: EDOXABAN TOSYLATE
     Indication: Anticoagulant therapy
     Route: 065

REACTIONS (3)
  - Varicose vein [Recovering/Resolving]
  - Haemorrhage subcutaneous [Unknown]
  - Off label use [Unknown]
